FAERS Safety Report 10506173 (Version 2)
Quarter: 2016Q2

REPORT INFORMATION
  Report Type: Spontaneous
  Country: GR (occurrence: GR)
  Receive Date: 20141009
  Receipt Date: 20160630
  Transmission Date: 20160815
  Serious: Yes (Other)
  Sender: FDA-Public Use
  Company Number: GR-009507513-1410GRC001958

PATIENT
  Sex: Female
  Weight: 78 kg

DRUGS (3)
  1. JANUMET [Suspect]
     Active Substance: METFORMIN HYDROCHLORIDE\SITAGLIPTIN PHOSPHATE
     Indication: TYPE 2 DIABETES MELLITUS
     Dosage: 1 TABLET IN THE MORNING AND 1 TABLET AT NIGHT, DAILY (DOSE 1X2)
     Route: 048
     Dates: start: 2009
  2. PRITOR PLUS [Concomitant]
     Active Substance: TELMISARTAN
     Dosage: TOTAL DAILY DOSE: 1X1
  3. TENORMIN [Concomitant]
     Active Substance: ATENOLOL
     Dosage: 1/2 X2

REACTIONS (1)
  - Breast cancer [Unknown]
